FAERS Safety Report 23753916 (Version 2)
Quarter: 2024Q2

REPORT INFORMATION
  Report Type: Report from Study
  Country: KR (occurrence: KR)
  Receive Date: 20240417
  Receipt Date: 20240625
  Transmission Date: 20240716
  Serious: Yes (Hospitalization)
  Sender: FDA-Public Use
  Company Number: KR-SAMSUNG BIOEPIS-SB-2024-10525

PATIENT
  Age: 32 Year
  Sex: Female

DRUGS (10)
  1. ADALIMUMAB [Suspect]
     Active Substance: ADALIMUMAB\ISOPROPYL ALCOHOL
     Indication: Ankylosing spondylitis
     Dosage: 40MG/0.4ML;
     Route: 058
  2. SULFASALAZINE [Concomitant]
     Active Substance: SULFASALAZINE
     Indication: Product used for unknown indication
     Route: 048
     Dates: start: 202306, end: 20231128
  3. PREDNISOLONE [Concomitant]
     Active Substance: PREDNISOLONE
     Indication: Product used for unknown indication
     Route: 048
     Dates: start: 20230710, end: 20230827
  4. PREDNISOLONE [Concomitant]
     Active Substance: PREDNISOLONE
     Dates: start: 20230828, end: 20231128
  5. PREDNISOLONE [Concomitant]
     Active Substance: PREDNISOLONE
     Dosage: 0.5 TAB EVERY DAY
     Route: 065
     Dates: start: 20231129, end: 20231226
  6. ACECLOFENAC [Concomitant]
     Active Substance: ACECLOFENAC
     Indication: Pain
     Route: 048
     Dates: start: 20230828, end: 20240123
  7. ACECLOFENAC [Concomitant]
     Active Substance: ACECLOFENAC
     Route: 048
     Dates: start: 20240124
  8. RABEPRAZOLE SODIUM [Concomitant]
     Active Substance: RABEPRAZOLE SODIUM
     Indication: Gastritis
     Route: 048
     Dates: start: 20230828, end: 20240123
  9. REBAMIPIDE [Concomitant]
     Active Substance: REBAMIPIDE
     Indication: Gastritis
     Dosage: 1
     Route: 048
     Dates: start: 20230710, end: 20231128
  10. ACETAMINOPHEN [Concomitant]
     Active Substance: ACETAMINOPHEN
     Indication: Pyrexia
     Dosage: 2
     Route: 048
     Dates: start: 20231101, end: 20231103

REACTIONS (1)
  - Gastroenteritis eosinophilic [Recovered/Resolved]

NARRATIVE: CASE EVENT DATE: 20240218
